FAERS Safety Report 5697388-0 (Version None)
Quarter: 2008Q2

REPORT INFORMATION
  Report Type: 
  Country: None (occurrence: None)
  Receive Date: 20080404
  Receipt Date: 20080404
  Transmission Date: 20081010
  Serious: No
  Sender: FDA-Public Use
  Company Number: None

PATIENT
  Sex: Female

DRUGS (1)
  1. RECLIPSEN [Suspect]
     Indication: CONTRACEPTION
     Dosage: ONCE DAILY DAILY PO
     Route: 048
     Dates: start: 20080320

REACTIONS (4)
  - ABDOMINAL PAIN UPPER [None]
  - ARTHRALGIA [None]
  - BREAST PAIN [None]
  - BREAST TENDERNESS [None]
